FAERS Safety Report 8192315-9 (Version None)
Quarter: 2012Q1

REPORT INFORMATION
  Report Type: 
  Country: None (occurrence: None)
  Receive Date: 20120307
  Receipt Date: 20120229
  Transmission Date: 20120608
  Serious: Yes (Life-Threatening)
  Sender: FDA-Public Use
  Company Number: US-VERTEX PHARMACEUTICALS INC.-AE-2012-002904

PATIENT
  Age: 50 Year
  Sex: Male
  Weight: 90.8 kg

DRUGS (1)
  1. INCIVEK [Suspect]
     Indication: HEPATITIS C
     Route: 048
     Dates: start: 20110901, end: 20111021

REACTIONS (2)
  - RENAL IMPAIRMENT [None]
  - PANCYTOPENIA [None]
